FAERS Safety Report 13651039 (Version 2)
Quarter: 2017Q2

REPORT INFORMATION
  Report Type: Spontaneous
  Country: US (occurrence: US)
  Receive Date: 20170614
  Receipt Date: 20170626
  Transmission Date: 20170830
  Serious: Yes (Other)
  Sender: FDA-Public Use
  Company Number: US-GLAXOSMITHKLINE-US2017GSK090326

PATIENT
  Age: 47 Year
  Sex: Male

DRUGS (23)
  1. NEXIUM [Concomitant]
     Active Substance: ESOMEPRAZOLE MAGNESIUM
     Dosage: UNK
     Dates: start: 201601
  2. NEURONTIN [Concomitant]
     Active Substance: GABAPENTIN
  3. IMITREX [Concomitant]
     Active Substance: SUMATRIPTAN SUCCINATE
  4. XYREM [Suspect]
     Active Substance: SODIUM OXYBATE
     Indication: CATAPLEXY
     Dosage: 3.75 G, BID
     Route: 048
     Dates: start: 201401, end: 201405
  5. OXYCODONE AND ACETAMINOPHEN [Concomitant]
     Active Substance: ACETAMINOPHEN\OXYCODONE HYDROCHLORIDE
  6. WELLBUTRIN [Suspect]
     Active Substance: BUPROPION HYDROCHLORIDE
     Indication: PRODUCT USED FOR UNKNOWN INDICATION
     Dosage: UNK, U
     Dates: end: 2016
  7. INDERAL [Concomitant]
     Active Substance: PROPRANOLOL HYDROCHLORIDE
  8. MAGNESIUM OXIDE. [Concomitant]
     Active Substance: MAGNESIUM OXIDE
  9. KLONOPIN [Concomitant]
     Active Substance: CLONAZEPAM
  10. CYMBALTA [Concomitant]
     Active Substance: DULOXETINE HYDROCHLORIDE
  11. XYREM [Suspect]
     Active Substance: SODIUM OXYBATE
     Dosage: 4.5 G, BID
     Route: 048
     Dates: start: 201405
  12. FLONASE [Concomitant]
     Active Substance: FLUTICASONE PROPIONATE
  13. CLARITIN (GLICLAZIDE) [Concomitant]
     Active Substance: GLICLAZIDE
  14. LUNESTA [Concomitant]
     Active Substance: ESZOPICLONE
  15. PROVIGIL [Concomitant]
     Active Substance: MODAFINIL
  16. XYREM [Suspect]
     Active Substance: SODIUM OXYBATE
     Indication: NARCOLEPSY
     Dosage: 2.25 G, BID
     Route: 048
     Dates: start: 201311, end: 201401
  17. MINIPRESS [Concomitant]
     Active Substance: PRAZOSIN HYDROCHLORIDE
  18. LORAZEPAM. [Concomitant]
     Active Substance: LORAZEPAM
  19. VITAMIN B12 [Concomitant]
     Active Substance: CYANOCOBALAMIN
  20. LOVAZA [Concomitant]
     Active Substance: OMEGA-3-ACID ETHYL ESTERS
  21. HYDROCODONE/ACETAMINOPHEN [Concomitant]
     Active Substance: ACETAMINOPHEN\HYDROCODONE
  22. AVODART [Concomitant]
     Active Substance: DUTASTERIDE
  23. VIAGRA [Concomitant]
     Active Substance: SILDENAFIL CITRATE

REACTIONS (5)
  - Pre-existing condition improved [Unknown]
  - Spinal nerve stimulator implantation [Unknown]
  - Seizure [Not Recovered/Not Resolved]
  - Nasal septal operation [Unknown]
  - Therapeutic response unexpected [Unknown]

NARRATIVE: CASE EVENT DATE: 2016
